FAERS Safety Report 20061561 (Version 1)
Quarter: 2021Q4

REPORT INFORMATION
  Report Type: Spontaneous
  Country: DE (occurrence: DE)
  Receive Date: 20211112
  Receipt Date: 20211112
  Transmission Date: 20220304
  Serious: No
  Sender: FDA-Public Use
  Company Number: None

PATIENT
  Age: 67 Year
  Sex: Male
  Weight: 75 kg

DRUGS (3)
  1. PREGABALIN [Suspect]
     Active Substance: PREGABALIN
     Indication: Restless legs syndrome
     Dosage: 200 MILLIGRAM, QD
     Route: 048
  2. PREGABALIN [Suspect]
     Active Substance: PREGABALIN
     Dosage: 300 MILLIGRAM, QD
     Route: 048
     Dates: start: 20210820, end: 20210821
  3. Zopiclodura 7,5 mg [ZOPICLONE] [Concomitant]
     Indication: Insomnia
     Dosage: 0.5 MILLIGRAM (AS NECESSARY)
     Route: 048

REACTIONS (3)
  - Fall [Unknown]
  - Gait disturbance [Unknown]
  - Off label use [Unknown]

NARRATIVE: CASE EVENT DATE: 20210822
